FAERS Safety Report 10246267 (Version 2)
Quarter: 2014Q2

REPORT INFORMATION
  Report Type: Report from Study
  Country: US (occurrence: US)
  Receive Date: 20140619
  Receipt Date: 20140619
  Transmission Date: 20141212
  Serious: Yes (Hospitalization)
  Sender: FDA-Public Use
  Company Number: US-B.I. PHARMACEUTICALS,INC./RIDGEFIELD-2014-BI-12145BI

PATIENT
  Age: 90 Year
  Sex: Male
  Weight: 84 kg

DRUGS (1)
  1. DABIGATRAN [Suspect]
     Indication: ATRIAL FIBRILLATION
     Dosage: 360 MG
     Route: 048
     Dates: end: 20120123

REACTIONS (2)
  - Urinary tract infection bacterial [Recovered/Resolved]
  - Haematuria [Recovered/Resolved]
